FAERS Safety Report 4291830-8 (Version None)
Quarter: 2004Q1

REPORT INFORMATION
  Report Type: 
  Country: None (occurrence: None)
  Receive Date: 20040211
  Receipt Date: 20030617
  Transmission Date: 20041129
  Serious: No
  Sender: FDA-Public Use
  Company Number: US-GLAXOSMITHKLINE-A0412800A

PATIENT
  Age: 52 Year
  Sex: Male

DRUGS (14)
  1. IMITREX [Suspect]
     Indication: MIGRAINE
     Dosage: 6MG UNKNOWN
     Route: 058
  2. RHINOCORT [Concomitant]
  3. ZYRTEC [Concomitant]
  4. PRILOSEC [Concomitant]
  5. TOPAMAX [Concomitant]
  6. NEURONTIN [Concomitant]
  7. LODINE [Concomitant]
  8. TRANXENE [Concomitant]
  9. BUSPAR [Concomitant]
  10. XANAX [Concomitant]
  11. LEVOXYL [Concomitant]
  12. DEMEROL [Concomitant]
  13. LORCET-HD [Concomitant]
  14. TYLOX [Concomitant]

REACTIONS (1)
  - DRUG INEFFECTIVE [None]
